FAERS Safety Report 24117166 (Version 1)
Quarter: 2024Q3

REPORT INFORMATION
  Report Type: Other
  Country: DO (occurrence: DO)
  Receive Date: 20240722
  Receipt Date: 20240722
  Transmission Date: 20241017
  Serious: Yes (Death, Hospitalization)
  Sender: TOLMAR
  Company Number: DO-TOLMAR, INC.-24DO050401

PATIENT
  Age: 68 Year
  Sex: Male

DRUGS (4)
  1. ELIGARD [Suspect]
     Active Substance: LEUPROLIDE ACETATE
     Indication: Prostate cancer
     Dosage: 22.5 MILLIGRAM, Q 3 MONTH
     Route: 058
     Dates: start: 20240417
  2. ELIGARD [Suspect]
     Active Substance: LEUPROLIDE ACETATE
     Indication: Prostate cancer
     Dosage: UNK
  3. AMLODIPINE [Concomitant]
     Active Substance: AMLODIPINE BESYLATE
     Indication: Blood pressure abnormal
  4. UNSPECIFIED INGREDIENT [Concomitant]
     Active Substance: UNSPECIFIED INGREDIENT
     Indication: Product used for unknown indication

REACTIONS (5)
  - Haematemesis [Fatal]
  - Blood pressure abnormal [Fatal]
  - Haemoglobin decreased [Fatal]
  - Cerebrovascular accident [Fatal]
  - Myocardial infarction [Fatal]

NARRATIVE: CASE EVENT DATE: 20240611
